FAERS Safety Report 19225701 (Version 1)
Quarter: 2021Q2

REPORT INFORMATION
  Report Type: Spontaneous
  Country: CA (occurrence: CA)
  Receive Date: 20210506
  Receipt Date: 20210506
  Transmission Date: 20210717
  Serious: Yes (Other)
  Sender: FDA-Public Use
  Company Number: CA-ROCHE-2822621

PATIENT
  Age: 60 Year
  Sex: Female

DRUGS (18)
  1. COSENTYX [Suspect]
     Active Substance: SECUKINUMAB
     Route: 058
  2. IBUPROFEN;PSEUDOEPHEDRINE [Concomitant]
     Active Substance: IBUPROFEN\PSEUDOEPHEDRINE HYDROCHLORIDE
  3. COSENTYX [Suspect]
     Active Substance: SECUKINUMAB
     Indication: PSORIATIC ARTHROPATHY
     Route: 065
  4. COSENTYX [Suspect]
     Active Substance: SECUKINUMAB
     Route: 058
  5. CELECOXIB. [Concomitant]
     Active Substance: CELECOXIB
     Route: 048
  6. METHOTREXATE. [Suspect]
     Active Substance: METHOTREXATE
     Indication: PRODUCT USED FOR UNKNOWN INDICATION
     Route: 065
  7. PAROXETINE. [Concomitant]
     Active Substance: PAROXETINE
  8. AMLODIPINE [Suspect]
     Active Substance: AMLODIPINE BESYLATE
     Indication: PRODUCT USED FOR UNKNOWN INDICATION
     Route: 065
  9. STELARA [Concomitant]
     Active Substance: USTEKINUMAB
  10. COSENTYX [Suspect]
     Active Substance: SECUKINUMAB
     Route: 065
  11. ROSUVASTATIN CALCIUM. [Concomitant]
     Active Substance: ROSUVASTATIN CALCIUM
  12. CLONAZEPAM. [Suspect]
     Active Substance: CLONAZEPAM
     Indication: PRODUCT USED FOR UNKNOWN INDICATION
     Route: 065
  13. COSENTYX [Suspect]
     Active Substance: SECUKINUMAB
     Route: 058
  14. LEFLUNOMIDE. [Suspect]
     Active Substance: LEFLUNOMIDE
     Indication: PRODUCT USED FOR UNKNOWN INDICATION
     Route: 065
  15. BETAMETHASONE DIPROPIONATE;CALCIPOTRIOL [Concomitant]
     Active Substance: BETAMETHASONE DIPROPIONATE\CALCIPOTRIENE
  16. NAPROXEN. [Concomitant]
     Active Substance: NAPROXEN
  17. ROSUVASTATIN. [Concomitant]
     Active Substance: ROSUVASTATIN
  18. SYNTHROID [Concomitant]
     Active Substance: LEVOTHYROXINE SODIUM

REACTIONS (22)
  - Joint swelling [Recovered/Resolved]
  - Malaise [Recovered/Resolved]
  - Secretion discharge [Recovered/Resolved]
  - Skin disorder [Recovered/Resolved]
  - Device malfunction [Unknown]
  - Hypoaesthesia [Recovered/Resolved]
  - Accidental exposure to product [Unknown]
  - Injection site haemorrhage [Recovered/Resolved]
  - Dry skin [Recovered/Resolved]
  - Peripheral swelling [Recovered/Resolved]
  - Depression [Recovered/Resolved]
  - Fatigue [Recovered/Resolved]
  - Pruritus [Recovered/Resolved]
  - Haemorrhagic diathesis [Recovered/Resolved]
  - Rash [Recovered/Resolved]
  - Asthenia [Recovered/Resolved]
  - Skin burning sensation [Recovered/Resolved]
  - Skin exfoliation [Recovered/Resolved]
  - Diarrhoea [Recovered/Resolved]
  - Emotional distress [Recovered/Resolved]
  - Sinus congestion [Recovered/Resolved]
  - Incorrect dose administered [Unknown]
